FAERS Safety Report 17314181 (Version 10)
Quarter: 2022Q3

REPORT INFORMATION
  Report Type: Other
  Country: GB (occurrence: None)
  Receive Date: 20200124
  Receipt Date: 20220803
  Transmission Date: 20221026
  Serious: Yes (Hospitalization, Other)
  Sender: FDA-Public Use
  Company Number: GB-ROCHE-2094640

PATIENT
  Age: 62 Year
  Sex: Female

DRUGS (113)
  1. TRASTUZUMAB [Suspect]
     Active Substance: TRASTUZUMAB
     Indication: Breast cancer
     Route: 058
     Dates: start: 20180202, end: 20180827
  2. PACLITAXEL [Suspect]
     Active Substance: PACLITAXEL
     Indication: Breast cancer
     Route: 042
     Dates: start: 20180202, end: 20180518
  3. LETROZOLE [Suspect]
     Active Substance: LETROZOLE
     Indication: Breast cancer
     Route: 048
     Dates: start: 20180119, end: 20180126
  4. LETROZOLE [Suspect]
     Active Substance: LETROZOLE
     Route: 048
     Dates: start: 20180525, end: 20181011
  5. ADO-TRASTUZUMAB EMTANSINE [Suspect]
     Active Substance: ADO-TRASTUZUMAB EMTANSINE
     Indication: Breast cancer
     Route: 042
     Dates: start: 20181019, end: 20190927
  6. TERBUTALINE [Concomitant]
     Active Substance: TERBUTALINE
     Route: 055
     Dates: start: 20030108
  7. CALCIUM CARBONATE\CHOLECALCIFEROL [Concomitant]
     Active Substance: CALCIUM CARBONATE\CHOLECALCIFEROL
     Route: 048
     Dates: start: 20140127
  8. BENDROFLUMETHIAZIDE [Concomitant]
     Active Substance: BENDROFLUMETHIAZIDE
     Route: 048
     Dates: start: 20030114
  9. BENDROFLUMETHIAZIDE [Concomitant]
     Active Substance: BENDROFLUMETHIAZIDE
     Route: 048
     Dates: start: 20190908
  10. PENTASA [Concomitant]
     Active Substance: MESALAMINE
     Indication: Crohn^s disease
     Dosage: SACHETS
     Route: 048
     Dates: start: 20131217, end: 20180730
  11. PENTASA [Concomitant]
     Active Substance: MESALAMINE
     Route: 048
     Dates: start: 20180730
  12. DOXAZOSIN [Concomitant]
     Active Substance: DOXAZOSIN MESYLATE
     Route: 048
     Dates: start: 20040816
  13. DOXAZOSIN [Concomitant]
     Active Substance: DOXAZOSIN MESYLATE
     Route: 048
     Dates: start: 20190908
  14. OMEPRAZOLE [Concomitant]
     Active Substance: OMEPRAZOLE
     Route: 048
     Dates: start: 20091014
  15. OMEPRAZOLE [Concomitant]
     Active Substance: OMEPRAZOLE
     Route: 048
     Dates: start: 20191107, end: 20200205
  16. COCODAMOL [Concomitant]
     Active Substance: ACETAMINOPHEN\CODEINE PHOSPHATE
     Dosage: 30/500 MG FORM STRENGTH
     Route: 048
     Dates: start: 20030104, end: 20180225
  17. COCODAMOL [Concomitant]
     Active Substance: ACETAMINOPHEN\CODEINE PHOSPHATE
     Dates: start: 20180302
  18. QUININE SULFATE [Concomitant]
     Active Substance: QUININE SULFATE
     Route: 048
     Dates: start: 20040219
  19. FOLIC ACID [Concomitant]
     Active Substance: FOLIC ACID
     Route: 048
     Dates: start: 20030207
  20. RANITIDINE [Concomitant]
     Active Substance: RANITIDINE
     Dosage: TAKEN PRIOR TO STUDY
     Route: 042
     Dates: start: 20180202
  21. RANITIDINE [Concomitant]
     Active Substance: RANITIDINE
     Dates: start: 20181123, end: 20181123
  22. RANITIDINE [Concomitant]
     Active Substance: RANITIDINE
     Route: 048
     Dates: start: 20200212
  23. CHLORPHENIRAMINE MALEATE [Concomitant]
     Active Substance: CHLORPHENIRAMINE MALEATE
     Dosage: TAKEN PRIOR TO STUDY
     Route: 042
     Dates: start: 20180202
  24. CHLORPHENIRAMINE MALEATE [Concomitant]
     Active Substance: CHLORPHENIRAMINE MALEATE
     Route: 048
     Dates: start: 20190909, end: 20190915
  25. METOCLOPRAMIDE [Concomitant]
     Active Substance: METOCLOPRAMIDE
     Dosage: TAKEN PRIOR TO STUDY
     Route: 048
     Dates: start: 20180202
  26. METOCLOPRAMIDE [Concomitant]
     Active Substance: METOCLOPRAMIDE
     Route: 048
     Dates: start: 20190909, end: 20190909
  27. METOCLOPRAMIDE [Concomitant]
     Active Substance: METOCLOPRAMIDE
     Dosage: AS NEEDED
     Route: 048
     Dates: start: 201910
  28. HYDROXOCOBALAMIN [Concomitant]
     Active Substance: HYDROXOCOBALAMIN
     Dosage: 1 MG/1 ML
     Route: 030
     Dates: start: 20020115
  29. FLUCONAZOLE [Concomitant]
     Active Substance: FLUCONAZOLE
     Route: 048
     Dates: start: 20180125
  30. CHLORPHENIRAMINE MALEATE [Concomitant]
     Active Substance: CHLORPHENIRAMINE MALEATE
     Route: 048
     Dates: start: 20180125
  31. CLOTRIMAZOLE [Concomitant]
     Active Substance: CLOTRIMAZOLE
     Route: 061
     Dates: start: 20180125
  32. BENZYDAMINE [Concomitant]
     Active Substance: BENZYDAMINE
     Dosage: MOUTHWASH
     Dates: start: 20180414
  33. CETIRIZINE HYDROCHLORIDE [Concomitant]
     Active Substance: CETIRIZINE HYDROCHLORIDE
     Route: 048
     Dates: start: 20080430
  34. ZOLEDRONIC ACID [Concomitant]
     Active Substance: ZOLEDRONIC ACID
     Indication: Metastases to bone
     Route: 042
     Dates: start: 20181019
  35. ACETAMINOPHEN [Concomitant]
     Active Substance: ACETAMINOPHEN
     Indication: Oedema
     Route: 048
     Dates: start: 20180225, end: 20180301
  36. ACETAMINOPHEN [Concomitant]
     Active Substance: ACETAMINOPHEN
     Route: 048
     Dates: start: 20180916, end: 20181002
  37. ACETAMINOPHEN [Concomitant]
     Active Substance: ACETAMINOPHEN
     Route: 042
     Dates: start: 20181220, end: 20181220
  38. ACETAMINOPHEN [Concomitant]
     Active Substance: ACETAMINOPHEN
     Dosage: AS NEEDED
     Route: 048
     Dates: start: 20181003
  39. CHOLECALCIFEROL [Concomitant]
     Active Substance: CHOLECALCIFEROL
     Route: 048
     Dates: start: 20180920
  40. CHOLECALCIFEROL [Concomitant]
     Active Substance: CHOLECALCIFEROL
     Route: 048
     Dates: start: 20180926
  41. CHLORHEXIDINE [Concomitant]
     Active Substance: CHLORHEXIDINE
     Dosage: AS NEEDED
     Dates: start: 20181019
  42. METRONIDAZOLE [Concomitant]
     Active Substance: METRONIDAZOLE
     Indication: Sepsis
     Route: 042
     Dates: start: 20181119, end: 20181121
  43. METRONIDAZOLE [Concomitant]
     Active Substance: METRONIDAZOLE
     Dates: start: 20181122, end: 20181123
  44. METRONIDAZOLE [Concomitant]
     Active Substance: METRONIDAZOLE
     Route: 042
     Dates: start: 20190526
  45. METRONIDAZOLE [Concomitant]
     Active Substance: METRONIDAZOLE
     Route: 048
     Dates: start: 20190911, end: 20190915
  46. METRONIDAZOLE [Concomitant]
     Active Substance: METRONIDAZOLE
     Route: 048
     Dates: start: 20190916, end: 20190916
  47. METRONIDAZOLE [Concomitant]
     Active Substance: METRONIDAZOLE
     Route: 048
     Dates: start: 201910, end: 20191009
  48. METRONIDAZOLE [Concomitant]
     Active Substance: METRONIDAZOLE
     Route: 048
     Dates: start: 20190918, end: 20190918
  49. DOXYCYCLINE [Concomitant]
     Active Substance: DOXYCYCLINE
     Route: 048
     Dates: start: 20181113, end: 20181113
  50. DOXYCYCLINE [Concomitant]
     Active Substance: DOXYCYCLINE
     Route: 048
     Dates: start: 20181114, end: 20181119
  51. VANCOMYCIN [Concomitant]
     Active Substance: VANCOMYCIN
     Indication: Sepsis
     Route: 042
     Dates: start: 20181119, end: 20181119
  52. VANCOMYCIN [Concomitant]
     Active Substance: VANCOMYCIN
     Route: 042
     Dates: start: 20190526, end: 20190526
  53. VANCOMYCIN [Concomitant]
     Active Substance: VANCOMYCIN
     Route: 042
     Dates: start: 20190527
  54. VANCOMYCIN [Concomitant]
     Active Substance: VANCOMYCIN
     Route: 042
     Dates: start: 20181120, end: 20181122
  55. CYCLIZINE [Concomitant]
     Active Substance: CYCLIZINE
     Route: 048
     Dates: start: 20181102
  56. CARBOXYMETHYLCELLULOSE SODIUM [Concomitant]
     Active Substance: CARBOXYMETHYLCELLULOSE SODIUM
     Route: 061
     Dates: start: 20181220, end: 20190116
  57. DUODERM CREAM [Concomitant]
     Route: 061
     Dates: start: 20181220, end: 20190116
  58. ONDANSETRON [Concomitant]
     Active Substance: ONDANSETRON
     Dosage: AS NEEDED
     Route: 048
     Dates: start: 20181216, end: 20190107
  59. ONDANSETRON [Concomitant]
     Active Substance: ONDANSETRON
     Dosage: AS NEEDED
     Route: 042
     Dates: start: 20181119, end: 20181122
  60. ONDANSETRON [Concomitant]
     Active Substance: ONDANSETRON
     Route: 048
     Dates: start: 20190920, end: 20190920
  61. ONDANSETRON [Concomitant]
     Active Substance: ONDANSETRON
     Route: 048
     Dates: start: 20200214, end: 20200214
  62. TEICOPLANIN [Concomitant]
     Active Substance: TEICOPLANIN
     Route: 065
     Dates: start: 20181220, end: 20181224
  63. SILVER NITRATE [Concomitant]
     Active Substance: SILVER NITRATE
     Indication: Haemorrhage
     Route: 061
     Dates: start: 20190510, end: 20190510
  64. SILVER NITRATE [Concomitant]
     Active Substance: SILVER NITRATE
     Route: 061
     Dates: start: 20190522, end: 20190522
  65. SILVER NITRATE [Concomitant]
     Active Substance: SILVER NITRATE
     Route: 061
     Dates: start: 20190527, end: 20190527
  66. SILVER NITRATE [Concomitant]
     Active Substance: SILVER NITRATE
     Dosage: 1 UNIT
     Route: 061
     Dates: start: 20180329, end: 20180329
  67. SILVER NITRATE [Concomitant]
     Active Substance: SILVER NITRATE
     Route: 061
     Dates: start: 20190730, end: 20190730
  68. HUMAN RED BLOOD CELL [Concomitant]
     Active Substance: HUMAN RED BLOOD CELL
     Indication: Haemorrhage
     Route: 042
     Dates: start: 20190511, end: 20190511
  69. HUMAN RED BLOOD CELL [Concomitant]
     Active Substance: HUMAN RED BLOOD CELL
     Indication: Stoma site haemorrhage
     Dosage: 3 UNIT
     Route: 042
     Dates: start: 20190523, end: 20190524
  70. EUMOVATE [Concomitant]
     Active Substance: CLOBETASONE BUTYRATE
     Indication: Pruritus
     Route: 061
     Dates: start: 20190403
  71. EUMOVATE [Concomitant]
     Active Substance: CLOBETASONE BUTYRATE
     Indication: Skin abrasion
  72. SALINE [Concomitant]
     Active Substance: SODIUM CHLORIDE
     Indication: Stoma site haemorrhage
     Route: 042
     Dates: start: 20190522, end: 20190522
  73. DEXTROSE\SODIUM CHLORIDE [Concomitant]
     Active Substance: DEXTROSE\SODIUM CHLORIDE
     Indication: Stoma site haemorrhage
     Dosage: 0.18NA CL 4% GLUCOSE
     Route: 042
     Dates: start: 20190523, end: 20190523
  74. GLUCOSE;POTASSIUM CHLORIDE;SODIUM CHLORIDE [Concomitant]
     Indication: Stoma site haemorrhage
     Dosage: 0.18% NACL 4% GLUCOSE + 20MML KCL
     Route: 042
     Dates: start: 20190525, end: 20190525
  75. GENTAMICIN [Concomitant]
     Active Substance: GENTAMICIN
     Indication: Sepsis
     Route: 042
     Dates: start: 20190526, end: 20190526
  76. GENTAMICIN [Concomitant]
     Active Substance: GENTAMICIN
     Route: 042
     Dates: start: 20190528, end: 20190528
  77. GENTAMICIN [Concomitant]
     Active Substance: GENTAMICIN
     Route: 042
     Dates: start: 20181119, end: 20181119
  78. GENTAMICIN [Concomitant]
     Active Substance: GENTAMICIN
     Route: 011
     Dates: start: 20190911, end: 20190911
  79. GENTAMICIN [Concomitant]
     Active Substance: GENTAMICIN
     Route: 042
     Dates: start: 20190913, end: 20190913
  80. HEPARIN SODIUM [Concomitant]
     Active Substance: HEPARIN SODIUM
     Indication: Prophylaxis
     Route: 042
     Dates: start: 20190502, end: 20191106
  81. FEXOFENADINE [Concomitant]
     Active Substance: FEXOFENADINE HYDROCHLORIDE
     Indication: Pruritus
     Route: 048
     Dates: start: 20190403, end: 20190403
  82. FEXOFENADINE [Concomitant]
     Active Substance: FEXOFENADINE HYDROCHLORIDE
     Indication: Skin abrasion
     Route: 048
     Dates: start: 201910, end: 20191119
  83. SUGAMMADEX [Concomitant]
     Active Substance: SUGAMMADEX
     Route: 042
     Dates: start: 20181220, end: 20181220
  84. SODIUM CHLORIDE [Concomitant]
     Active Substance: SODIUM CHLORIDE
     Route: 042
     Dates: start: 20181123, end: 20181123
  85. SODIUM CHLORIDE [Concomitant]
     Active Substance: SODIUM CHLORIDE
     Route: 042
     Dates: start: 20181122, end: 20181123
  86. DERMOLATE [Concomitant]
     Dosage: AS NEEDED
     Route: 061
     Dates: start: 20180605
  87. CLARITHROMYCIN [Concomitant]
     Active Substance: CLARITHROMYCIN
     Route: 048
     Dates: start: 20190717, end: 20190724
  88. FERROUS FUMARATE [Concomitant]
     Active Substance: FERROUS FUMARATE
     Route: 048
     Dates: start: 20190730
  89. TRANEXAMIC ACID [Concomitant]
     Active Substance: TRANEXAMIC ACID
     Route: 048
     Dates: start: 20190804, end: 20190806
  90. TRIMETHOPRIM [Concomitant]
     Active Substance: TRIMETHOPRIM
     Route: 048
     Dates: start: 20190813, end: 20190815
  91. AMOXICILLIN [Concomitant]
     Active Substance: AMOXICILLIN
     Route: 042
     Dates: start: 20190911, end: 20190915
  92. CIPROFLOXACIN [Concomitant]
     Active Substance: CIPROFLOXACIN
     Route: 048
     Dates: start: 201910, end: 20191009
  93. AMOXICILLIN\CLAVULANATE POTASSIUM [Concomitant]
     Active Substance: AMOXICILLIN\CLAVULANATE POTASSIUM
     Route: 048
     Dates: start: 20190915, end: 20190916
  94. CARBOXYMETHYLCELLULOSE [Concomitant]
     Active Substance: CARBOXYMETHYLCELLULOSE
     Route: 061
     Dates: start: 20181220, end: 20190116
  95. CETIRIZINE [Concomitant]
     Active Substance: CETIRIZINE HYDROCHLORIDE
     Route: 048
     Dates: start: 20080430
  96. HYDROCORTISONE [Concomitant]
     Active Substance: HYDROCORTISONE
     Route: 061
     Dates: start: 20180605
  97. IRON [Concomitant]
     Active Substance: IRON
     Route: 048
     Dates: start: 20190730
  98. SODIUM CHLORIDE [Concomitant]
     Active Substance: SODIUM CHLORIDE
     Indication: Gastrointestinal haemorrhage
     Route: 042
     Dates: start: 20181123, end: 20181123
  99. SODIUM CHLORIDE [Concomitant]
     Active Substance: SODIUM CHLORIDE
     Route: 042
     Dates: start: 20190523, end: 20190523
  100. SODIUM CHLORIDE [Concomitant]
     Active Substance: SODIUM CHLORIDE
     Route: 042
     Dates: start: 20190522, end: 20190522
  101. SODIUM CHLORIDE [Concomitant]
     Active Substance: SODIUM CHLORIDE
     Route: 042
     Dates: start: 20181122, end: 20181123
  102. TOLNAFTATE [Concomitant]
     Active Substance: TOLNAFTATE
     Route: 061
     Dates: start: 20181220, end: 20190116
  103. TRANEXAMIC ACID [Concomitant]
     Active Substance: TRANEXAMIC ACID
     Route: 048
     Dates: start: 20190804, end: 20190806
  104. LEVOBUPIVACAINE HYDROCHLORIDE [Concomitant]
     Active Substance: LEVOBUPIVACAINE HYDROCHLORIDE
  105. COCODAMOL [Concomitant]
     Active Substance: ACETAMINOPHEN\CODEINE PHOSPHATE
  106. DEXAMETHASONE [Concomitant]
     Active Substance: DEXAMETHASONE
  107. NYSTATIN [Concomitant]
     Active Substance: NYSTATIN
  108. GENTAMICIN [Concomitant]
     Active Substance: GENTAMICIN
  109. POTASSIUM CHLORIDE [Concomitant]
     Active Substance: POTASSIUM CHLORIDE
  110. SANDO-K [Concomitant]
  111. SILVER NITRATE [Concomitant]
     Active Substance: SILVER NITRATE
  112. MINERAL OIL\PARAFFIN [Concomitant]
     Active Substance: MINERAL OIL\PARAFFIN
  113. AMLODIPINE [Concomitant]
     Active Substance: AMLODIPINE BESYLATE
     Route: 065
     Dates: start: 20180202, end: 20180518

REACTIONS (9)
  - Cancer pain [Recovered/Resolved]
  - Mucosal inflammation [Recovered/Resolved]
  - Bone pain [Recovered/Resolved]
  - Vomiting [Recovered/Resolved]
  - Diarrhoea [Recovered/Resolved]
  - C-reactive protein increased [Recovered/Resolved]
  - Wound [Recovered/Resolved]
  - Oedema peripheral [Recovered/Resolved]
  - Arthralgia [Recovered/Resolved]

NARRATIVE: CASE EVENT DATE: 20180225
